FAERS Safety Report 9635263 (Version 2)
Quarter: 2013Q4

REPORT INFORMATION
  Report Type: Spontaneous
  Country: US (occurrence: US)
  Receive Date: 20131021
  Receipt Date: 20131021
  Transmission Date: 20140711
  Serious: No
  Sender: FDA-Public Use
  Company Number: US-PURDUE-USA-2013-0101215

PATIENT
  Sex: Female

DRUGS (8)
  1. BUTRANS [Suspect]
     Indication: PAIN
     Dosage: 20 MCG/HR, UNK
     Route: 062
     Dates: start: 20130313
  2. BUTRANS [Suspect]
     Dosage: 5 MCG/HR, UNK
     Route: 062
     Dates: start: 20130306
  3. BUTRANS [Suspect]
     Dosage: 10 MCG/HR, UNK
     Route: 062
     Dates: start: 20130310
  4. ULTRAM [Suspect]
     Indication: PRODUCT USED FOR UNKNOWN INDICATION
     Dosage: 80 MG (1-2 TABS), Q6H
     Route: 048
     Dates: start: 20130308, end: 20130326
  5. NAPROXEN [Suspect]
     Indication: PRODUCT USED FOR UNKNOWN INDICATION
     Dosage: 500 MG, BID
     Route: 048
     Dates: start: 20130304, end: 20130306
  6. CELEBREX [Suspect]
     Indication: PRODUCT USED FOR UNKNOWN INDICATION
     Dosage: 200 MG, DAILY
     Route: 048
     Dates: start: 20130306
  7. VICODIN [Suspect]
     Indication: PRODUCT USED FOR UNKNOWN INDICATION
     Dosage: (15/500), 1-2 TABLETS, Q6H
     Route: 048
     Dates: start: 20130308, end: 20130308
  8. FLEXERIL /00428402/ [Suspect]
     Indication: PRODUCT USED FOR UNKNOWN INDICATION
     Dosage: 10 MG, TID
     Route: 048
     Dates: start: 20130326

REACTIONS (3)
  - Drug withdrawal syndrome [Unknown]
  - Hepatic enzyme increased [Recovering/Resolving]
  - Oedema [Unknown]
